FAERS Safety Report 8168610-6 (Version None)
Quarter: 2012Q1

REPORT INFORMATION
  Report Type: 
  Country: None (occurrence: None)
  Receive Date: 20120222
  Receipt Date: 20120210
  Transmission Date: 20120608
  Serious: Yes (Life-Threatening)
  Sender: FDA-Public Use
  Company Number: 2012MA001991

PATIENT
  Age: 23 Year
  Sex: Male

DRUGS (2)
  1. FLUOXETINE [Suspect]
     Dosage: 20 MG;PO
     Route: 048
     Dates: start: 20111202, end: 20120101
  2. ACETAMINOPHEN [Concomitant]

REACTIONS (2)
  - OVERDOSE [None]
  - SUICIDAL IDEATION [None]
